FAERS Safety Report 4760621-3 (Version None)
Quarter: 2005Q3

REPORT INFORMATION
  Report Type: 
  Country: None (occurrence: None)
  Receive Date: 20050826
  Receipt Date: 20050107
  Transmission Date: 20060218
  Serious: Yes (Other)
  Sender: FDA-Public Use
  Company Number: USA-2005-0018278

PATIENT
  Age: 42 Year
  Sex: Male

DRUGS (4)
  1. OXYCODONE HCL [Suspect]
  2. MORPHINE SULFATE [Suspect]
  3. ALCOHOL (ALCOHOL) [Suspect]
  4. COCAINE (COCAINE) [Suspect]

REACTIONS (3)
  - IMPAIRED DRIVING ABILITY [None]
  - MIOSIS [None]
  - POLYSUBSTANCE ABUSE [None]
